FAERS Safety Report 10029330 (Version 1)
Quarter: 2014Q1

REPORT INFORMATION
  Report Type: Spontaneous
  Country: TW (occurrence: TW)
  Receive Date: 20140321
  Receipt Date: 20140321
  Transmission Date: 20141002
  Serious: Yes (Other)
  Sender: FDA-Public Use
  Company Number: PHHY2014TW033580

PATIENT
  Age: 60 Year
  Sex: Female

DRUGS (9)
  1. CLOTIAPINE [Suspect]
     Indication: INSOMNIA
     Dosage: 40 MG, UNK
  2. MIRTAZAPINE [Suspect]
     Dosage: 60 MG, UNK
  3. FLUNITRAZEPAM [Suspect]
     Dosage: 4 MG, UNK
  4. TRAZODONE [Suspect]
     Dosage: 100 MG, UNK
  5. TRIAZOLAM [Suspect]
     Dosage: 0.5 MG, UNK
  6. CLOZAPINE [Suspect]
     Dosage: 25 MG, UNK
  7. BENSERAZIDE [Suspect]
     Dosage: 25 MG, UNK
  8. LEVODOPA [Suspect]
     Dosage: 100 MG, UNK
  9. BENZODIAZEPINES [Suspect]
     Indication: INSOMNIA

REACTIONS (9)
  - Masked facies [Recovering/Resolving]
  - Drooling [Recovering/Resolving]
  - Dyskinesia [Recovering/Resolving]
  - Pleurothotonus [Recovering/Resolving]
  - Gait disturbance [Recovering/Resolving]
  - Parkinsonism [Recovering/Resolving]
  - Condition aggravated [Recovering/Resolving]
  - Insomnia [Recovering/Resolving]
  - Drug ineffective [Unknown]
